FAERS Safety Report 7456633-1 (Version None)
Quarter: 2011Q2

REPORT INFORMATION
  Report Type: 
  Country: None (occurrence: None)
  Receive Date: 20110503
  Receipt Date: 20090324
  Transmission Date: 20111010
  Serious: Yes (Hospitalization, Other)
  Sender: FDA-Public Use
  Company Number: DE-GENENTECH-317849

PATIENT
  Sex: Female

DRUGS (2)
  1. LUCENTIS [Suspect]
     Indication: AGE-RELATED MACULAR DEGENERATION
     Dosage: UNK
     Route: 031
     Dates: start: 20080818
  2. FUROSEMIDE [Concomitant]
     Indication: PRODUCT USED FOR UNKNOWN INDICATION
     Dosage: UNK

REACTIONS (12)
  - HYPOKALAEMIA [None]
  - FACIAL PARESIS [None]
  - EYELID PTOSIS [None]
  - FALL [None]
  - DIZZINESS [None]
  - VIITH NERVE PARALYSIS [None]
  - HYPERSENSITIVITY [None]
  - EYE PAIN [None]
  - SPEECH DISORDER [None]
  - VISUAL ACUITY REDUCED [None]
  - INAPPROPRIATE SCHEDULE OF DRUG ADMINISTRATION [None]
  - CONTUSION [None]
